FAERS Safety Report 5160517-1 (Version None)
Quarter: 2006Q4

REPORT INFORMATION
  Report Type: 
  Country: None (occurrence: None)
  Receive Date: 20061129
  Receipt Date: 20061121
  Transmission Date: 20070319
  Serious: Yes (Hospitalization)
  Sender: FDA-Public Use
  Company Number: US-ROXANE LABORATORIES, INC-2006-DE-06192GD

PATIENT
  Age: 67 Year
  Sex: Female

DRUGS (12)
  1. CALCIUM CARBONATE [Suspect]
     Route: 048
  2. CALCITRIOL [Suspect]
     Dosage: 0.25 MCG/EVERY OTHER DAY
  3. CLONIDINE [Concomitant]
  4. PREDNISONE TAB [Concomitant]
  5. MAGNESIUM GLUCONATE [Concomitant]
  6. POTASSIUM CHLORIDE [Concomitant]
  7. ATENOLOL [Concomitant]
  8. LANSOPRAZOLE [Concomitant]
  9. LEVOTHYROXINE SODIUM [Concomitant]
  10. ATORVASTATIN CALCIUM [Concomitant]
  11. FOLIC ACID [Concomitant]
  12. THIAMINE [Concomitant]

REACTIONS (3)
  - HYPERCALCAEMIA [None]
  - HYPOMAGNESAEMIA [None]
  - MILK-ALKALI SYNDROME [None]
